FAERS Safety Report 6260155-3 (Version None)
Quarter: 2009Q3

REPORT INFORMATION
  Report Type: 
  Country: None (occurrence: None)
  Receive Date: 20090708
  Receipt Date: 20090629
  Transmission Date: 20100115
  Serious: Yes (Hospitalization)
  Sender: FDA-Public Use
  Company Number: A0794320A

PATIENT
  Age: 76 Year
  Sex: Female

DRUGS (4)
  1. RYTHMOL [Suspect]
     Indication: ARRHYTHMIA
     Dosage: 325MG TWICE PER DAY
     Route: 048
     Dates: start: 19640101
  2. INSULIN [Concomitant]
  3. CLONIDINE [Concomitant]
  4. GLYBURIDE AND METFORMIN HCL [Concomitant]

REACTIONS (2)
  - DRUG INEFFECTIVE [None]
  - HEART RATE INCREASED [None]
